FAERS Safety Report 5233173-1 (Version None)
Quarter: 2007Q1

REPORT INFORMATION
  Report Type: 
  Country: None (occurrence: None)
  Receive Date: 20061204
  Receipt Date: 20061026
  Transmission Date: 20070707
  Serious: No
  Sender: FDA-Public Use
  Company Number: 2006-BP-12684BP

PATIENT
  Sex: Female

DRUGS (19)
  1. SPIRIVA [Suspect]
     Indication: CHRONIC OBSTRUCTIVE PULMONARY DISEASE
     Dosage: 18 MCG (18 MCG),IH
     Route: 055
  2. AMBIEN [Concomitant]
  3. BONIVA (IBANDRONATE SODIUM) [Concomitant]
  4. COMBIVENT (COMBIVENT /01261001/) [Concomitant]
  5. DIAZIDE (GLICLAZIDE) [Concomitant]
  6. LASIX [Concomitant]
  7. LOMOTIL (LOMOTIL /00034001/) [Concomitant]
  8. NEXIUM [Concomitant]
  9. OSCAL (CALCIUM CARBONATE) [Concomitant]
  10. POTASSIUM (POTASSIUM) [Concomitant]
  11. PREDNISONE TAB [Concomitant]
  12. PREMARIN [Concomitant]
  13. SYNTHROID [Concomitant]
  14. ULTRAM [Concomitant]
  15. XOPENEX [Concomitant]
  16. OXYCONTIN [Concomitant]
  17. NEURONTIN [Concomitant]
  18. IBUPROFEN [Concomitant]
  19. TYLENOL [Concomitant]

REACTIONS (1)
  - DRUG INEFFECTIVE [None]
